FAERS Safety Report 11018262 (Version 2)
Quarter: 2015Q2

REPORT INFORMATION
  Report Type: Spontaneous
  Country: US (occurrence: US)
  Receive Date: 20150412
  Receipt Date: 20150524
  Transmission Date: 20150821
  Serious: Yes (Hospitalization)
  Sender: FDA-Public Use
  Company Number: US-JNJFOC-20130308637

PATIENT
  Sex: Female

DRUGS (5)
  1. IFOSFAMIDE. [Suspect]
     Active Substance: IFOSFAMIDE
     Indication: UTERINE LEIOMYOSARCOMA
     Route: 042
  2. MESNA. [Suspect]
     Active Substance: MESNA
     Indication: UTERINE LEIOMYOSARCOMA
     Route: 042
  3. DACARBAZINE. [Suspect]
     Active Substance: DACARBAZINE
     Indication: UTERINE LEIOMYOSARCOMA
     Route: 042
  4. DOXORUBICIN [Suspect]
     Active Substance: DOXORUBICIN
     Indication: UTERINE LEIOMYOSARCOMA
     Route: 042
  5. MESNA. [Suspect]
     Active Substance: MESNA
     Indication: UTERINE LEIOMYOSARCOMA
     Route: 042

REACTIONS (1)
  - Febrile neutropenia [Unknown]
